FAERS Safety Report 7188817-4 (Version None)
Quarter: 2010Q4

REPORT INFORMATION
  Report Type: 
  Country: None (occurrence: None)
  Receive Date: 20101222
  Receipt Date: 20100727
  Transmission Date: 20110411
  Serious: No
  Sender: FDA-Public Use
  Company Number: US-AMGEN-KDL427422

PATIENT

DRUGS (19)
  1. ENBREL [Suspect]
     Indication: PRODUCT USED FOR UNKNOWN INDICATION
     Dosage: 50 MG, QWK
     Route: 058
  2. DULOXETIME HYDROCHLORIDE [Concomitant]
     Dosage: 60 MG, UNK
  3. PROMETHAZINE HYDROCHLORIDE [Concomitant]
     Dosage: 25 MG, UNK
  4. ELMIRON [Concomitant]
     Dosage: 100 MG, UNK
  5. CETIRIZINE HYDROCHLORIDE [Concomitant]
     Dosage: 10 MG, UNK
  6. GABAPENTIN [Concomitant]
     Dosage: 300 MG, UNK
  7. LEVOTHYROXINE SODIUM [Concomitant]
     Dosage: 200 A?G, UNK
  8. VALSARTAN/HYDROCHLOROTHIAZIDE [Concomitant]
     Dosage: UNK UNK, UNK
  9. TRAZODONE HCL [Concomitant]
     Dosage: 100 MG, UNK
  10. TIZANIDINE HCL [Concomitant]
     Dosage: 4 MG, UNK
  11. FOLIC ACID [Concomitant]
     Dosage: 1 MG, UNK
  12. BUPROPION [Concomitant]
     Dosage: 150 MG, UNK
  13. ESOMEPRAZOLE MAGNESIUM [Concomitant]
     Dosage: 40 MG, UNK
  14. IMIPRAMINE [Concomitant]
     Dosage: 150 MG, UNK
  15. MELOXICAM [Concomitant]
     Dosage: 15 MG, UNK
  16. ACETAMINOPHEN AND OXYCODONE HCL [Concomitant]
     Dosage: UNK UNK, UNK
  17. ACETAMINOPHEN AND HYDROCODONE BITARTRATE [Concomitant]
     Dosage: UNK UNK, UNK
  18. GUAIFENESIN [Concomitant]
     Dosage: 600 MG, UNK
  19. CETIRIZINE HYDROCHLORIDE [Concomitant]
     Dosage: 10 MG, UNK

REACTIONS (1)
  - INJECTION SITE PAIN [None]
